FAERS Safety Report 6781563-8 (Version None)
Quarter: 2010Q2

REPORT INFORMATION
  Report Type: 
  Country: None (occurrence: None)
  Receive Date: 20100621
  Receipt Date: 20100611
  Transmission Date: 20101027
  Serious: Yes (Other)
  Sender: FDA-Public Use
  Company Number: HQWYE425130JUL03

PATIENT
  Sex: Female

DRUGS (3)
  1. PREMPRO [Suspect]
     Indication: HORMONE REPLACEMENT THERAPY
     Dosage: UNKNOWN DOSE DAILY
     Route: 048
  2. PROVERA [Suspect]
  3. PREMARIN [Suspect]

REACTIONS (1)
  - BREAST CANCER RECURRENT [None]
